FAERS Safety Report 21144141 (Version 5)
Quarter: 2023Q4

REPORT INFORMATION
  Report Type: Spontaneous
  Country: JP (occurrence: JP)
  Receive Date: 20220728
  Receipt Date: 20231003
  Transmission Date: 20240109
  Serious: Yes (Death, Hospitalization)
  Sender: FDA-Public Use
  Company Number: JP-DSJP-DSJ-2022-126495

PATIENT
  Age: 89 Year
  Sex: Male
  Weight: 47.1 kg

DRUGS (12)
  1. EDOXABAN TOSYLATE [Suspect]
     Active Substance: EDOXABAN TOSYLATE
     Indication: Atrial flutter
     Dosage: 30 MG, QD
     Route: 048
     Dates: start: 20210819, end: 20211116
  2. EDOXABAN TOSYLATE [Suspect]
     Active Substance: EDOXABAN TOSYLATE
     Indication: Atrial fibrillation
  3. BEPRIDIL [Suspect]
     Active Substance: BEPRIDIL
     Indication: Atrial flutter
     Dosage: 50 MG, BID
     Route: 048
     Dates: end: 2021
  4. BEPRIDIL [Suspect]
     Active Substance: BEPRIDIL
     Indication: Atrial fibrillation
     Dosage: 50 MG, BID
     Route: 048
     Dates: start: 2021
  5. APRINDINE HYDROCHLORIDE [Concomitant]
     Active Substance: APRINDINE HYDROCHLORIDE
     Indication: Arrhythmia
     Dosage: 20 MG, BID
     Route: 048
     Dates: start: 20210819, end: 20211116
  6. APRINDINE HYDROCHLORIDE [Concomitant]
     Active Substance: APRINDINE HYDROCHLORIDE
     Indication: Atrial flutter
  7. APRINDINE HYDROCHLORIDE [Concomitant]
     Active Substance: APRINDINE HYDROCHLORIDE
     Indication: Atrial fibrillation
  8. TELMISARTAN [Concomitant]
     Active Substance: TELMISARTAN
     Indication: Hypertension
     Dosage: 40 MG, QD
     Route: 048
     Dates: end: 20211116
  9. RABEPRAZOLE SODIUM [Concomitant]
     Active Substance: RABEPRAZOLE SODIUM
     Indication: Gastrooesophageal reflux disease
     Dosage: 10 MG, QD
     Route: 048
     Dates: end: 20211116
  10. MIRABEGRON [Concomitant]
     Active Substance: MIRABEGRON
     Indication: Hypertonic bladder
     Dosage: 50 MG, QD
     Route: 048
     Dates: end: 20211116
  11. SILODOSIN OD [Concomitant]
     Indication: Hypertonic bladder
     Dosage: 4 MG, BID
     Route: 048
     Dates: end: 20211116
  12. BIO-THREE [Concomitant]
     Active Substance: HERBALS
     Indication: Enterocolitis
     Dosage: 1 G, TID
     Route: 048

REACTIONS (1)
  - Interstitial lung disease [Fatal]

NARRATIVE: CASE EVENT DATE: 20211115
